FAERS Safety Report 5482115-2 (Version None)
Quarter: 2007Q4

REPORT INFORMATION
  Report Type: 
  Country: None (occurrence: None)
  Receive Date: 20071011
  Receipt Date: 20071002
  Transmission Date: 20080405
  Serious: Yes (Hospitalization, Other)
  Sender: FDA-Public Use
  Company Number: PHNR2007AU01803

PATIENT
  Age: 58 Year
  Sex: Female
  Weight: 43 kg

DRUGS (1)
  1. CLOZARIL [Suspect]
     Indication: SCHIZOPHRENIA
     Dosage: 150 MG, QD
     Dates: start: 20051229

REACTIONS (7)
  - BLOOD CHOLESTEROL INCREASED [None]
  - DRUG LEVEL FLUCTUATING [None]
  - NEUTROPHIL COUNT DECREASED [None]
  - TREATMENT NONCOMPLIANCE [None]
  - WEIGHT DECREASED [None]
  - WEIGHT LOSS DIET [None]
  - WHITE BLOOD CELL COUNT DECREASED [None]
